FAERS Safety Report 5901541-8 (Version None)
Quarter: 2008Q3

REPORT INFORMATION
  Report Type: 
  Country: None (occurrence: None)
  Receive Date: 20080926
  Receipt Date: 20080926
  Transmission Date: 20090109
  Serious: Yes (Hospitalization)
  Sender: FDA-Public Use
  Company Number: None

PATIENT
  Sex: Male
  Weight: 111.6 kg

DRUGS (1)
  1. TEMOZOLOMIDE [Suspect]
     Dosage: 75MG

REACTIONS (4)
  - ASTHENIA [None]
  - DIARRHOEA [None]
  - NAUSEA [None]
  - VOMITING [None]
